FAERS Safety Report 9556316 (Version 1)
Quarter: 2013Q3

REPORT INFORMATION
  Report Type: Spontaneous
  Country: US (occurrence: None)
  Receive Date: 20130724
  Receipt Date: 20130724
  Transmission Date: 20140515
  Serious: No
  Sender: FDA-Public Use
  Company Number: PHEH2013US006681

PATIENT
  Age: 45 Year
  Sex: Female

DRUGS (10)
  1. GILENYA (FINGOLIMOD) CAPSULE, 0.5MG [Suspect]
     Indication: MULTIPLE SCLEROSIS
     Dosage: 0.5 MG, QD, ORAL
     Route: 048
     Dates: start: 20120126, end: 201212
  2. ZOCOR (SIMVASTATIN) [Concomitant]
  3. COGENTIN (BENZATROPINE MESILATE) [Concomitant]
  4. PAXIL (PAROXETINE HYDROCHLORIDE) [Concomitant]
  5. DIFLUCAN (FLUCONAZOLE) [Concomitant]
  6. TOPAMAX (TOPIRAMATE) [Concomitant]
  7. GEODON (ZIPRASIDONE HYDROCHLORIDE) [Concomitant]
  8. MARINOL [Concomitant]
  9. BACLOFEN (BACLOFEN) [Concomitant]
  10. GABAPENTIN (GABAPENTIN) [Concomitant]

REACTIONS (2)
  - Somnambulism [None]
  - Sleep disorder [None]
